FAERS Safety Report 11779431 (Version 2)
Quarter: 2015Q4

REPORT INFORMATION
  Report Type: Spontaneous
  Country: DE (occurrence: DE)
  Receive Date: 20151125
  Receipt Date: 20151217
  Transmission Date: 20160304
  Serious: Yes (Death, Other)
  Sender: FDA-Public Use
  Company Number: DE-PFIZER INC-2015399597

PATIENT
  Age: 47 Year
  Sex: Female

DRUGS (15)
  1. ETOPOSIDE. [Suspect]
     Active Substance: ETOPOSIDE
     Indication: B-CELL LYMPHOMA
     Dosage: 5 CYCLES
     Dates: start: 199101, end: 199104
  2. CYCLOPHOSPHAMIDE. [Suspect]
     Active Substance: CYCLOPHOSPHAMIDE
     Indication: B-CELL LYMPHOMA
     Dosage: 5 CYCLES
     Dates: start: 199101, end: 199104
  3. ETOPOSIDE. [Suspect]
     Active Substance: ETOPOSIDE
     Dosage: 1700 MG, UNK
  4. VINCRISTINE SULFATE. [Suspect]
     Active Substance: VINCRISTINE SULFATE
     Indication: B-CELL LYMPHOMA
     Dosage: 5 CYCLES
     Dates: start: 199101, end: 199104
  5. MITOXANTRONE HCL [Suspect]
     Active Substance: MITOXANTRONE HYDROCHLORIDE
     Indication: DIFFUSE LARGE B-CELL LYMPHOMA
     Dosage: UNK
  6. DOXORUBICIN HCL [Suspect]
     Active Substance: DOXORUBICIN HYDROCHLORIDE
     Indication: B-CELL LYMPHOMA
     Dosage: 5 CYCLES
     Dates: start: 199101, end: 199104
  7. CISPLANTIN [Suspect]
     Active Substance: CISPLATIN
     Indication: B-CELL LYMPHOMA
     Dosage: 2 CYCLES
     Dates: start: 199303, end: 199305
  8. CYCLOPHOSPHAMIDE. [Suspect]
     Active Substance: CYCLOPHOSPHAMIDE
     Dosage: 6800 MG, UNK
  9. CYTARABINE. [Suspect]
     Active Substance: CYTARABINE
     Indication: B-CELL LYMPHOMA
     Dosage: 2 CYCLES
     Dates: start: 199303, end: 199305
  10. ADRIAMYCIN [Suspect]
     Active Substance: DOXORUBICIN HYDROCHLORIDE
     Indication: B-CELL LYMPHOMA
     Dosage: 2 CYCLES
     Dates: start: 199303, end: 199305
  11. PREDNISONE. [Suspect]
     Active Substance: PREDNISONE
     Indication: B-CELL LYMPHOMA
     Dosage: 5 CYCLES
     Dates: start: 199101, end: 199104
  12. PREDNISONE. [Suspect]
     Active Substance: PREDNISONE
     Dosage: 2 CYCLES
     Dates: start: 199303, end: 199305
  13. BUSULFAN [Suspect]
     Active Substance: BUSULFAN
     Indication: B-CELL LYMPHOMA
     Dosage: 800 MG, UNK
  14. VINCRISTINE SULFATE. [Suspect]
     Active Substance: VINCRISTINE SULFATE
     Indication: DIFFUSE LARGE B-CELL LYMPHOMA
     Dosage: UNK
  15. DEXAMETHASONE. [Suspect]
     Active Substance: DEXAMETHASONE
     Indication: DIFFUSE LARGE B-CELL LYMPHOMA
     Dosage: UNK

REACTIONS (2)
  - Acute myeloid leukaemia [Fatal]
  - Second primary malignancy [Fatal]
